FAERS Safety Report 11964727 (Version 1)
Quarter: 2016Q1

REPORT INFORMATION
  Report Type: Report from Study
  Country: IN (occurrence: IN)
  Receive Date: 20160127
  Receipt Date: 20160127
  Transmission Date: 20160526
  Serious: Yes (Other)
  Sender: FDA-Public Use
  Company Number: IN-BRISTOL-MYERS SQUIBB COMPANY-13843214

PATIENT
  Age: 27 Year
  Sex: Female

DRUGS (3)
  1. ARIPIPRAZOLE. [Suspect]
     Active Substance: ARIPIPRAZOLE
     Indication: BIPOLAR I DISORDER
     Dosage: 10 MG, QD
     Route: 048
     Dates: start: 20070327, end: 20070711
  2. MALA D [Concomitant]
     Indication: CONTRACEPTION
     Dosage: UNK
     Route: 065
     Dates: start: 2005, end: 20070711
  3. EXTERNAL-VALPROATE SODIUM [Suspect]
     Active Substance: VALPROATE SODIUM
     Indication: BIPOLAR I DISORDER
     Dosage: 1000 MG, QD
     Route: 048
     Dates: start: 20070308, end: 20070711

REACTIONS (2)
  - Abortion induced [Unknown]
  - Pregnancy on oral contraceptive [Unknown]

NARRATIVE: CASE EVENT DATE: 20070721
